FAERS Safety Report 16804913 (Version 1)
Quarter: 2019Q3

REPORT INFORMATION
  Report Type: Spontaneous
  Country: DE (occurrence: DE)
  Receive Date: 20190913
  Receipt Date: 20190913
  Transmission Date: 20191005
  Serious: Yes (Death, Hospitalization)
  Sender: FDA-Public Use
  Company Number: DE-AUROBINDO-AUR-APL-2018-011265

PATIENT
  Age: 72 Year
  Sex: Female
  Weight: 53 kg

DRUGS (25)
  1. OXALIPLATIN. [Suspect]
     Active Substance: OXALIPLATIN
     Indication: ADENOCARCINOMA GASTRIC
     Dosage: 85 MILLIGRAM/SQ. METER
     Route: 042
     Dates: start: 20120724, end: 20121010
  2. LEUCOVORIN. [Concomitant]
     Active Substance: LEUCOVORIN
     Indication: PRODUCT USED FOR UNKNOWN INDICATION
     Dosage: ()
     Route: 065
     Dates: start: 20120524
  3. NOVALGIN [Concomitant]
     Indication: PRODUCT USED FOR UNKNOWN INDICATION
     Dosage: ()
     Route: 048
     Dates: start: 20120604, end: 20120605
  4. GRANISETRON [Concomitant]
     Active Substance: GRANISETRON
     Indication: PRODUCT USED FOR UNKNOWN INDICATION
     Dosage: 2 MILLIGRAM
     Route: 065
  5. NEBIVOLOL. [Concomitant]
     Active Substance: NEBIVOLOL
     Indication: PRODUCT USED FOR UNKNOWN INDICATION
     Dosage: 5 MILLIGRAM
     Route: 065
  6. MCP [Concomitant]
     Active Substance: METOCLOPRAMIDE HYDROCHLORIDE
     Indication: PRODUCT USED FOR UNKNOWN INDICATION
     Dosage: DROPS ()
     Route: 048
  7. DOCETAXEL. [Suspect]
     Active Substance: DOCETAXEL
     Dosage: ()
     Route: 042
     Dates: start: 20120724, end: 20120926
  8. LOPERAMIDE [Concomitant]
     Active Substance: LOPERAMIDE
     Indication: PRODUCT USED FOR UNKNOWN INDICATION
     Dosage: 2 MILLIGRAM
     Route: 065
  9. OXALIPLATIN. [Suspect]
     Active Substance: OXALIPLATIN
     Dosage: LAST DOSE PRIOR TO SAE: 24/MAY/2012
     Route: 042
     Dates: start: 20120524, end: 20120710
  10. DOCETAXEL. [Suspect]
     Active Substance: DOCETAXEL
     Indication: ADENOCARCINOMA GASTRIC
     Dosage: LAST DOSE PRIOR TO SAE: 24/MAY/2012 ()
     Route: 042
     Dates: start: 20120524, end: 20120710
  11. FLUOROURACIL. [Suspect]
     Active Substance: FLUOROURACIL
     Dosage: 2600 MILLIGRAM/SQ. METER
     Route: 042
     Dates: start: 20120724, end: 20121010
  12. LEUCOVORIN. [Concomitant]
     Active Substance: LEUCOVORIN
     Dosage: ()
     Route: 065
     Dates: start: 20120724, end: 20120926
  13. VITAMIN B12 [Concomitant]
     Active Substance: CYANOCOBALAMIN
     Indication: PRODUCT USED FOR UNKNOWN INDICATION
     Dosage: 1000 MICROGRAM, 3 MONTH
     Route: 058
  14. HERCEPTIN [Suspect]
     Active Substance: TRASTUZUMAB
     Indication: ADENOCARCINOMA GASTRIC
     Dosage: LAST DOSE PRIOR TO SAE: 24/MAY/2012
     Route: 042
     Dates: start: 20120524
  15. ENALAPRIL [Concomitant]
     Active Substance: ENALAPRIL
     Indication: PRODUCT USED FOR UNKNOWN INDICATION
     Dosage: 20 MILLIGRAM
     Route: 065
  16. XELODA [Suspect]
     Active Substance: CAPECITABINE
     Indication: ADENOCARCINOMA GASTRIC
     Dosage: ()
     Route: 065
     Dates: start: 20111114, end: 20121213
  17. HERCEPTIN [Suspect]
     Active Substance: TRASTUZUMAB
     Dosage: UNK
     Route: 042
     Dates: start: 20121010
  18. HERCEPTIN [Suspect]
     Active Substance: TRASTUZUMAB
     Dosage: 6 MILLIGRAM/KILOGRAM
     Route: 042
     Dates: start: 20120724
  19. FOSFOMYCIN [Concomitant]
     Active Substance: FOSFOMYCIN
     Indication: PRODUCT USED FOR UNKNOWN INDICATION
     Dosage: 3000 MILLIGRAM, AS NECESSARY
     Route: 065
  20. SIMVASTATIN. [Concomitant]
     Active Substance: SIMVASTATIN
     Indication: PRODUCT USED FOR UNKNOWN INDICATION
     Dosage: 20 MILLIGRAM
     Route: 065
  21. KREON [Concomitant]
     Active Substance: PANCRELIPASE
     Indication: PRODUCT USED FOR UNKNOWN INDICATION
     Dosage: 60000 INTERNATIONAL UNIT, ONCE A DAY
     Route: 065
  22. NEUROTRAT FORTE [Concomitant]
     Indication: PRODUCT USED FOR UNKNOWN INDICATION
     Dosage: 2 DOSAGE FORM, ONCE A DAY
     Route: 065
  23. LEVOTHYROXINE. [Concomitant]
     Active Substance: LEVOTHYROXINE
     Indication: PRODUCT USED FOR UNKNOWN INDICATION
     Dosage: 50 MICROGRAM, ONCE A DAY
     Route: 065
  24. FLUOROURACIL. [Suspect]
     Active Substance: FLUOROURACIL
     Indication: ADENOCARCINOMA GASTRIC
     Dosage: LAST DOSE PRIOR TO SAE: 25/MAY/2012
     Route: 042
     Dates: start: 20120524, end: 20120710
  25. LEUCOVORIN. [Concomitant]
     Active Substance: LEUCOVORIN
     Dosage: ()
     Route: 065
     Dates: start: 20121010

REACTIONS (20)
  - Acute kidney injury [Recovered/Resolved]
  - Dizziness [Recovered/Resolved]
  - Leukopenia [Recovered/Resolved]
  - Gait disturbance [Recovered/Resolved]
  - Pulmonary oedema [Recovered/Resolved with Sequelae]
  - Hypokalaemia [Recovered/Resolved]
  - Device occlusion [Recovered/Resolved]
  - Anaemia [Recovered/Resolved]
  - Weight decreased [Recovered/Resolved with Sequelae]
  - Asthenia [Recovered/Resolved]
  - Urosepsis [Recovered/Resolved]
  - General physical health deterioration [Fatal]
  - Syncope [Recovered/Resolved]
  - Pyrexia [Recovered/Resolved]
  - Dyspnoea [Fatal]
  - Atrioventricular block [Recovered/Resolved]
  - Pneumonia [Fatal]
  - Dehydration [Recovered/Resolved]
  - Cachexia [Unknown]
  - Urinary tract infection [Recovered/Resolved]

NARRATIVE: CASE EVENT DATE: 20120604
